FAERS Safety Report 17752496 (Version 1)
Quarter: 2020Q2

REPORT INFORMATION
  Report Type: Spontaneous
  Country: CN (occurrence: CN)
  Receive Date: 20200506
  Receipt Date: 20200506
  Transmission Date: 20200714
  Serious: Yes (Other)
  Sender: FDA-Public Use
  Company Number: CN-ELI_LILLY_AND_COMPANY-CN202004011901

PATIENT
  Age: 18 Year
  Sex: Female
  Weight: 60 kg

DRUGS (6)
  1. LORAZEPAM. [Suspect]
     Active Substance: LORAZEPAM
     Indication: ANXIETY
     Dosage: 1 MG, DAILY
     Route: 048
     Dates: start: 20200107, end: 20200215
  2. CYMBALTA [Suspect]
     Active Substance: DULOXETINE HYDROCHLORIDE
     Indication: DEPRESSED MOOD
     Dosage: 120 MG, DAILY
     Route: 048
     Dates: start: 20200101, end: 20200215
  3. LORAZEPAM. [Suspect]
     Active Substance: LORAZEPAM
     Indication: POOR QUALITY SLEEP
     Dosage: 0.5 MG, DAILY
     Route: 048
     Dates: start: 20200215
  4. ESZOPICLONE. [Suspect]
     Active Substance: ESZOPICLONE
     Indication: POOR QUALITY SLEEP
     Dosage: 3 MG, DAILY
     Route: 048
     Dates: start: 20200215, end: 20200215
  5. CYMBALTA [Suspect]
     Active Substance: DULOXETINE HYDROCHLORIDE
     Indication: APATHY
     Dosage: 60 MG, DAILY
     Route: 048
  6. ESZOPICLONE. [Suspect]
     Active Substance: ESZOPICLONE
     Indication: DEPRESSED MOOD

REACTIONS (4)
  - Hypotension [Recovering/Resolving]
  - Red blood cell count decreased [Recovering/Resolving]
  - Platelet count decreased [Recovering/Resolving]
  - Haemoglobin decreased [Recovering/Resolving]

NARRATIVE: CASE EVENT DATE: 20200115
